FAERS Safety Report 15259355 (Version 1)
Quarter: 2018Q3

REPORT INFORMATION
  Report Type: Report from Study
  Country: US (occurrence: US)
  Receive Date: 20180809
  Receipt Date: 20180809
  Transmission Date: 20181010
  Serious: Yes (Other)
  Sender: FDA-Public Use
  Company Number: US-TEVA-2018-US-941281

PATIENT
  Sex: Male

DRUGS (11)
  1. BACLOFEN. [Concomitant]
     Active Substance: BACLOFEN
  2. ALENDRONATE SODIUM. [Concomitant]
     Active Substance: ALENDRONATE SODIUM
  3. AMITRIPTYLINE [Concomitant]
     Active Substance: AMITRIPTYLINE
  4. OMEPRAZOLE. [Concomitant]
     Active Substance: OMEPRAZOLE
  5. PRAVASTATIN. [Concomitant]
     Active Substance: PRAVASTATIN
  6. COPAXONE [Suspect]
     Active Substance: GLATIRAMER ACETATE
     Indication: MULTIPLE SCLEROSIS
     Dosage: PREFILLED SYRINGE
     Route: 058
     Dates: start: 20180221
  7. DICLOFENAC [Concomitant]
     Active Substance: DICLOFENAC
  8. TAMSULOSIN [Concomitant]
     Active Substance: TAMSULOSIN
  9. LISINOPRIL. [Concomitant]
     Active Substance: LISINOPRIL
  10. LYRICA [Concomitant]
     Active Substance: PREGABALIN
  11. WARFARIN [Concomitant]
     Active Substance: WARFARIN

REACTIONS (2)
  - Injury [Not Recovered/Not Resolved]
  - Fall [Unknown]
